FAERS Safety Report 9406914 (Version 2)
Quarter: 2013Q3

REPORT INFORMATION
  Report Type: Spontaneous
  Country: US (occurrence: US)
  Receive Date: 20130718
  Receipt Date: 20130827
  Transmission Date: 20140515
  Serious: No
  Sender: FDA-Public Use
  Company Number: US-PFIZER INC-2013207838

PATIENT
  Sex: Female

DRUGS (5)
  1. FLAGYL [Suspect]
     Dosage: UNK
  2. AMOXIL [Suspect]
     Dosage: UNK
  3. AVELOX [Suspect]
     Dosage: UNK
  4. BIAXIN [Suspect]
     Dosage: UNK
  5. CEFTIN [Suspect]
     Dosage: UNK

REACTIONS (1)
  - Drug hypersensitivity [Unknown]
